FAERS Safety Report 6865250-3 (Version None)
Quarter: 2010Q3

REPORT INFORMATION
  Report Type: 
  Country: None (occurrence: None)
  Receive Date: 20100721
  Receipt Date: 20080415
  Transmission Date: 20110219
  Serious: No
  Sender: FDA-Public Use
  Company Number: US-PFIZER INC-2008035377

PATIENT
  Sex: Female
  Weight: 58.636 kg

DRUGS (3)
  1. CHANTIX [Suspect]
     Indication: SMOKING CESSATION THERAPY
     Route: 048
     Dates: start: 20080404
  2. ADDERALL 10 [Concomitant]
  3. DRUG, UNSPECIFIED [Concomitant]
     Indication: HEADACHE

REACTIONS (3)
  - DIZZINESS [None]
  - NAUSEA [None]
  - PALLOR [None]
